FAERS Safety Report 5512238-0 (Version None)
Quarter: 2007Q4

REPORT INFORMATION
  Report Type: 
  Country: None (occurrence: None)
  Receive Date: 20071108
  Receipt Date: 20071108
  Transmission Date: 20080405
  Serious: Yes (Other)
  Sender: FDA-Public Use
  Company Number: None

PATIENT

DRUGS (2)
  1. CICLOPIROX [Suspect]
     Dosage: TOP
     Route: 061
  2. CIPROFLOXACIN OPTHALMIC 0.3% APOTEX CORP [Suspect]
     Dosage: OPHTHALMIC
     Route: 047

REACTIONS (2)
  - CIRCUMSTANCE OR INFORMATION CAPABLE OF LEADING TO MEDICATION ERROR [None]
  - MEDICATION ERROR [None]
